FAERS Safety Report 13875088 (Version 2)
Quarter: 2017Q4

REPORT INFORMATION
  Report Type: Spontaneous
  Country: IT (occurrence: IT)
  Receive Date: 20170816
  Receipt Date: 20171225
  Transmission Date: 20180320
  Serious: Yes (Other)
  Sender: FDA-Public Use
  Company Number: PHHY2017IT119190

PATIENT
  Age: 12 Year
  Sex: Male

DRUGS (1)
  1. OMNITROPE [Suspect]
     Active Substance: SOMATROPIN
     Indication: PRODUCT USED FOR UNKNOWN INDICATION
     Route: 058
     Dates: start: 20170130, end: 20170130

REACTIONS (2)
  - Drug ineffective [Unknown]
  - Growth retardation [Unknown]

NARRATIVE: CASE EVENT DATE: 20170801
